FAERS Safety Report 9039562 (Version 1)
Quarter: 2013Q1

REPORT INFORMATION
  Report Type: Report from Study
  Country: US (occurrence: US)
  Receive Date: 20130129
  Receipt Date: 20130129
  Transmission Date: 20140127
  Serious: No
  Sender: FDA-Public Use
  Company Number: US-ABBOTT-12P-163-0942114-00

PATIENT
  Age: 24 Year
  Sex: Female

DRUGS (7)
  1. HUMIRA 40 MG/0.8 ML PEN [Suspect]
     Indication: CROHN^S DISEASE
     Dosage: LOADING DOSE
     Dates: start: 20120518, end: 20120518
  2. HUMIRA 40 MG/0.8 ML PEN [Suspect]
     Dosage: LOADING DOSE
     Dates: start: 20120601
  3. METHOCARBAMOL [Concomitant]
     Indication: BACK PAIN
     Dosage: 1-2 TABS AT BEDTIME AS NEEDED
  4. ACETAMINOPHEN WITH CODEINE [Concomitant]
     Indication: CROHN^S DISEASE
     Dosage: 1 TAB EVERY 4 HOURS AS NEEDED
  5. ACETAMINOPHEN WITH CODEINE [Concomitant]
     Indication: PAIN
  6. GENERIC LOMOTIL [Concomitant]
     Indication: DIARRHOEA
     Dosage: 1-2 TABS AS NEEDED
  7. TYLENOL [Concomitant]
     Indication: PRODUCT USED FOR UNKNOWN INDICATION

REACTIONS (5)
  - Injection site bruising [Recovered/Resolved]
  - Injection site erythema [Recovering/Resolving]
  - Injection site swelling [Recovering/Resolving]
  - Injection site pain [Recovering/Resolving]
  - Injection site erythema [Unknown]
